FAERS Safety Report 9003674 (Version 1)
Quarter: 2013Q1

REPORT INFORMATION
  Report Type: Spontaneous
  Country: US (occurrence: US)
  Receive Date: 20130108
  Receipt Date: 20130108
  Transmission Date: 20140127
  Serious: No
  Sender: FDA-Public Use
  Company Number: US-GLAXOSMITHKLINE-A0959230A

PATIENT
  Age: 25 Year
  Sex: Female

DRUGS (2)
  1. LOVAZA [Suspect]
     Indication: BLOOD TRIGLYCERIDES INCREASED
     Dosage: 1CAP PER DAY
     Route: 048
     Dates: start: 201007, end: 20111213
  2. NO CONCURRENT MEDICATION [Concomitant]

REACTIONS (5)
  - Heart rate irregular [Recovered/Resolved]
  - Palpitations [Unknown]
  - Abdominal pain upper [Unknown]
  - Dizziness [Unknown]
  - Cardiac disorder [Unknown]
